FAERS Safety Report 19268958 (Version 1)
Quarter: 2021Q2

REPORT INFORMATION
  Report Type: Spontaneous
  Country: US (occurrence: US)
  Receive Date: 20210517
  Receipt Date: 20210517
  Transmission Date: 20210717
  Serious: Yes (Hospitalization)
  Sender: FDA-Public Use
  Company Number: None

PATIENT
  Sex: Female

DRUGS (25)
  1. ZINC OXIDE. [Concomitant]
     Active Substance: ZINC OXIDE
  2. BUMETANIDE. [Concomitant]
     Active Substance: BUMETANIDE
  3. HC PRAMOXINE CRE [Concomitant]
  4. PREPARATION OIN H [Concomitant]
  5. ADCIRCA [Suspect]
     Active Substance: TADALAFIL
     Indication: PULMONARY HYPERTENSION
     Route: 048
     Dates: start: 20180126
  6. CIPROFLOXACIN. [Concomitant]
     Active Substance: CIPROFLOXACIN
  7. HYDRALAZINE [Concomitant]
     Active Substance: HYDRALAZINE HYDROCHLORIDE
  8. LANTUS SOLOS [Concomitant]
  9. LIDOCAINE. [Concomitant]
     Active Substance: LIDOCAINE
  10. TRAMADOL HCL [Concomitant]
     Active Substance: TRAMADOL HYDROCHLORIDE
  11. GLUCOSE CHW [Concomitant]
  12. TORSEMIDE. [Concomitant]
     Active Substance: TORSEMIDE
  13. ACETAMIN [Concomitant]
     Active Substance: ACETAMINOPHEN
  14. AMLODIPINE [Concomitant]
     Active Substance: AMLODIPINE BESYLATE
  15. ATORVASTATIN [Concomitant]
     Active Substance: ATORVASTATIN
  16. ELIQUIS [Concomitant]
     Active Substance: APIXABAN
  17. GLIPIZIDE. [Concomitant]
     Active Substance: GLIPIZIDE
  18. HYDROCHOROT [Concomitant]
  19. LANSOPRAZOLE DR [Concomitant]
     Active Substance: LANSOPRAZOLE
  20. ALLOPURINOL. [Concomitant]
     Active Substance: ALLOPURINOL
  21. BUDES/FORMOT AER [Concomitant]
  22. ANUCORT?HC [Concomitant]
     Active Substance: HYDROCORTISONE ACETATE
  23. CLOTRIMAZOLE. [Concomitant]
     Active Substance: CLOTRIMAZOLE
  24. INSULIN ASPA FLEXPEN [Concomitant]
  25. POLYETH GLYC [Concomitant]
     Active Substance: POLYETHYLENE GLYCOLS

REACTIONS (1)
  - Fluid retention [None]
